FAERS Safety Report 9221563 (Version 2)
Quarter: 2013Q3

REPORT INFORMATION
  Report Type: Spontaneous
  Country: US (occurrence: US)
  Receive Date: 20130410
  Receipt Date: 20130716
  Transmission Date: 20140515
  Serious: No
  Sender: FDA-Public Use
  Company Number: US-009507513-1304USA002864

PATIENT
  Age: 26 Year
  Sex: Female
  Weight: 104.31 kg

DRUGS (3)
  1. NUVARING [Suspect]
     Indication: CONTRACEPTION
     Dosage: 1 DF, UNK
     Route: 067
     Dates: start: 201212, end: 20130324
  2. PHENTERMINE [Concomitant]
  3. TENUATE [Concomitant]

REACTIONS (1)
  - Unintended pregnancy [Unknown]
